FAERS Safety Report 13900397 (Version 1)
Quarter: 2017Q3

REPORT INFORMATION
  Report Type: Spontaneous
  Country: US (occurrence: None)
  Receive Date: 20170818
  Receipt Date: 20170818
  Transmission Date: 20171127
  Serious: No
  Sender: FDA-Public Use
  Company Number: None

PATIENT
  Age: 53 Year
  Sex: Male

DRUGS (1)
  1. ENBREL [Suspect]
     Active Substance: ETANERCEPT

REACTIONS (4)
  - Disease progression [None]
  - Eye inflammation [None]
  - Metastases to soft tissue [None]
  - Metastases to bone [None]

NARRATIVE: CASE EVENT DATE: 20170801
